FAERS Safety Report 18466960 (Version 1)
Quarter: 2020Q4

REPORT INFORMATION
  Report Type: Spontaneous
  Country: US (occurrence: US)
  Receive Date: 20201104
  Receipt Date: 20201104
  Transmission Date: 20210114
  Serious: Yes (Hospitalization)
  Sender: FDA-Public Use
  Company Number: None

PATIENT
  Age: 65 Year
  Sex: Male
  Weight: 93.67 kg

DRUGS (1)
  1. SPIRONOLACTONE (SPIRONOLACTONE 100MG TAB) [Suspect]
     Active Substance: SPIRONOLACTONE
     Indication: CARDIAC FAILURE CONGESTIVE
     Route: 048
     Dates: start: 20180524, end: 20180628

REACTIONS (4)
  - Hyperkalaemia [None]
  - Prerenal failure [None]
  - Electrocardiogram QRS complex prolonged [None]
  - Dehydration [None]

NARRATIVE: CASE EVENT DATE: 20180627
